FAERS Safety Report 8953873 (Version 1)
Quarter: 2012Q4

REPORT INFORMATION
  Report Type: 
  Country: DE (occurrence: DE)
  Receive Date: 20121206
  Receipt Date: 20121206
  Transmission Date: 20130627
  Serious: Yes (Congenital Anomaly)
  Sender: FDA-Public Use
  Company Number: DE-WATSON-2012-20792

PATIENT
  Sex: Female

DRUGS (2)
  1. CITALOPRAM HYDROBROMIDE (UNKNOWN) [Suspect]
     Indication: DEPRESSION
     Dosage: ^20 [mg/d ]/ dosage reduction to 10mg/d in the second
     Route: 064
     Dates: start: 20070714, end: 20080421
  2. IBUPROFEN [Concomitant]
     Indication: PAIN
     Dosage: 400 [mg/d ]
     Route: 064

REACTIONS (1)
  - Double outlet right ventricle [Recovered/Resolved with Sequelae]
